FAERS Safety Report 8860709 (Version 3)
Quarter: 2012Q4

REPORT INFORMATION
  Report Type: 
  Country: US (occurrence: US)
  Receive Date: 20121025
  Receipt Date: 20121218
  Transmission Date: 20130627
  Serious: No
  Sender: FDA-Public Use
  Company Number: US-ASTRAZENECA-2012SE80341

PATIENT
  Age: 60 Year
  Sex: Female

DRUGS (8)
  1. SEROQUEL XR [Suspect]
     Indication: DEPRESSION
     Route: 048
  2. SEROQUEL XR [Suspect]
     Indication: ANXIETY
     Route: 048
  3. SEROQUEL XR [Suspect]
     Indication: SLEEP DISORDER
     Route: 048
  4. PREMPRO [Concomitant]
  5. ZOLPIDEM TARTRATE [Concomitant]
  6. CLONAZEPAM [Concomitant]
  7. FLUOXETINE [Concomitant]
  8. LAMOTRIGINE [Concomitant]

REACTIONS (9)
  - Insomnia [Unknown]
  - Anxiety [Unknown]
  - Impaired work ability [Unknown]
  - Depression [Unknown]
  - Malaise [Unknown]
  - Drug dose omission [Unknown]
  - Hypersensitivity [Unknown]
  - Osteoarthritis [Unknown]
  - Antinuclear antibody positive [Unknown]
